FAERS Safety Report 21962299 (Version 1)
Quarter: 2023Q1

REPORT INFORMATION
  Report Type: Spontaneous
  Country: US (occurrence: US)
  Receive Date: 20230207
  Receipt Date: 20230207
  Transmission Date: 20230418
  Serious: No
  Sender: FDA-Public Use
  Company Number: US-PFIZER INC-PV202300010882

PATIENT
  Age: 74 Year
  Sex: Female

DRUGS (3)
  1. EUCRISA [Suspect]
     Active Substance: CRISABOROLE
     Indication: Pruritus
     Dosage: UNK, 2X/DAY, APPLY TWICE DAILY TO AFFECTED AREAS (INCLUDING THE FACE OR GROIN
  2. EUCRISA [Suspect]
     Active Substance: CRISABOROLE
     Indication: Dermatitis atopic
  3. EUCRISA [Suspect]
     Active Substance: CRISABOROLE
     Indication: Dermatitis contact

REACTIONS (4)
  - Skin burning sensation [Unknown]
  - Pruritus [Unknown]
  - Erythema [Unknown]
  - Drug ineffective [Unknown]
